FAERS Safety Report 10914738 (Version 1)
Quarter: 2015Q1

REPORT INFORMATION
  Report Type: Spontaneous
  Country: US (occurrence: US)
  Receive Date: 20150313
  Receipt Date: 20150313
  Transmission Date: 20150721
  Serious: Yes (Death, Other)
  Sender: FDA-Public Use
  Company Number: US-ASTELLAS-2015US007939

PATIENT
  Sex: Male

DRUGS (1)
  1. PROGRAF [Suspect]
     Active Substance: TACROLIMUS\TACROLIMUS ANHYDROUS
     Indication: RENAL DISORDER
     Dosage: UNK, UNKNOWN FREQ.
     Route: 048
     Dates: start: 2004, end: 2011

REACTIONS (2)
  - Death [Fatal]
  - Skin cancer [Unknown]
